FAERS Safety Report 6604070-1 (Version None)
Quarter: 2010Q1

REPORT INFORMATION
  Report Type: 
  Country: None (occurrence: None)
  Receive Date: 20100226
  Receipt Date: 20090505
  Transmission Date: 20100710
  Serious: No
  Sender: FDA-Public Use
  Company Number: A0782573A

PATIENT
  Age: 20 Year
  Sex: Female

DRUGS (1)
  1. LAMICTAL CD [Suspect]
     Indication: POSTPARTUM DEPRESSION
     Dosage: 25MG PER DAY
     Route: 048
     Dates: start: 20090504

REACTIONS (7)
  - BLEPHAROSPASM [None]
  - CHEST PAIN [None]
  - FORMICATION [None]
  - HYPOAESTHESIA FACIAL [None]
  - HYPOAESTHESIA ORAL [None]
  - MOOD SWINGS [None]
  - PRURITUS [None]
